FAERS Safety Report 10091743 (Version 1)
Quarter: 2014Q2

REPORT INFORMATION
  Report Type: Spontaneous
  Country: US (occurrence: US)
  Receive Date: 20140421
  Receipt Date: 20140421
  Transmission Date: 20141212
  Serious: No
  Sender: FDA-Public Use
  Company Number: US-PURDUE-USA-2003-0005694

PATIENT
  Sex: Male

DRUGS (2)
  1. OXYIR CAPSULES 5 MG [Suspect]
     Indication: PAIN
     Dosage: 5 MG, SINGLE
     Route: 048
  2. UNKNOWN [Concomitant]
     Dosage: UNK, UNK

REACTIONS (1)
  - Vomiting [Unknown]
